FAERS Safety Report 6373098-1 (Version None)
Quarter: 2009Q3

REPORT INFORMATION
  Report Type: 
  Country: None (occurrence: None)
  Receive Date: 20090924
  Receipt Date: 20090611
  Transmission Date: 20100115
  Serious: Yes (Other)
  Sender: FDA-Public Use
  Company Number: US-ASTRAZENECA-2009UW03072

PATIENT
  Age: 574 Month
  Sex: Female
  Weight: 81.2 kg

DRUGS (4)
  1. SEROQUEL [Suspect]
     Indication: SLEEP DISORDER
     Dosage: 300 TO 600 MG
     Route: 048
     Dates: start: 20030101, end: 20081101
  2. SEROQUEL [Suspect]
     Indication: ANXIETY
     Dosage: 300 TO 600 MG
     Route: 048
     Dates: start: 20030101, end: 20081101
  3. RISPERDAL [Concomitant]
  4. ZYPREXA [Concomitant]

REACTIONS (1)
  - PANCREATITIS [None]
